FAERS Safety Report 9753831 (Version 2)
Quarter: 2013Q4

REPORT INFORMATION
  Report Type: Spontaneous
  Country: US (occurrence: US)
  Receive Date: 20131213
  Receipt Date: 20131213
  Transmission Date: 20140711
  Serious: No
  Sender: FDA-Public Use
  Company Number: US-GILEAD-2010-0027078

PATIENT
  Sex: Male

DRUGS (13)
  1. LETAIRIS [Suspect]
     Indication: PULMONARY ARTERIAL HYPERTENSION
     Route: 048
     Dates: start: 20091002, end: 20091205
  2. TOPROL XL [Concomitant]
  3. AMIODARONE [Concomitant]
  4. LASIX [Concomitant]
  5. WARFARIN [Concomitant]
  6. PLAVIX [Concomitant]
  7. DOXAZOSIN MESYLATE [Concomitant]
  8. ADVAIR [Concomitant]
  9. COMBIVENT [Concomitant]
  10. ZANTAC [Concomitant]
  11. ADULT ASPIRIN [Concomitant]
  12. OMEPRAZOLE [Concomitant]
  13. ONE A DAY [Concomitant]

REACTIONS (1)
  - Productive cough [Recovered/Resolved]
